FAERS Safety Report 17839605 (Version 1)
Quarter: 2020Q2

REPORT INFORMATION
  Report Type: Spontaneous
  Country: US (occurrence: US)
  Receive Date: 20200529
  Receipt Date: 20200529
  Transmission Date: 20200714
  Serious: Yes (Death, Hospitalization, Other)
  Sender: FDA-Public Use
  Company Number: US-HIKMA PHARMACEUTICALS USA INC.-US-H14001-20-02521

PATIENT
  Age: 61 Year
  Sex: Female

DRUGS (1)
  1. LEUCOVORIN CALCIUM. [Suspect]
     Active Substance: LEUCOVORIN CALCIUM
     Indication: PRODUCT USED FOR UNKNOWN INDICATION
     Route: 065

REACTIONS (5)
  - Abdominal distension [Unknown]
  - Renal failure [Fatal]
  - Abdominal discomfort [Unknown]
  - Septic shock [Fatal]
  - Nausea [Unknown]

NARRATIVE: CASE EVENT DATE: 20191128
